FAERS Safety Report 5037453-4 (Version None)
Quarter: 2006Q2

REPORT INFORMATION
  Report Type: 
  Country: None (occurrence: None)
  Receive Date: 20060612
  Receipt Date: 20060103
  Transmission Date: 20061013
  Serious: Yes (Hospitalization)
  Sender: FDA-Public Use
  Company Number: 2006-00058

PATIENT
  Sex: 0

DRUGS (1)
  1. LORAZEPAM [Suspect]

REACTIONS (1)
  - RENAL IMPAIRMENT [None]
